FAERS Safety Report 12854439 (Version 1)
Quarter: 2016Q4

REPORT INFORMATION
  Report Type: Spontaneous
  Country: NO (occurrence: NO)
  Receive Date: 20161017
  Receipt Date: 20161017
  Transmission Date: 20170207
  Serious: Yes (Other)
  Sender: FDA-Public Use
  Company Number: NO-TEVA-698683ACC

PATIENT
  Age: 32 Year
  Sex: Male

DRUGS (6)
  1. ANTABUS [Suspect]
     Active Substance: DISULFIRAM
  2. ABILIFY [Suspect]
     Active Substance: ARIPIPRAZOLE
     Indication: SCHIZOPHRENIA
  3. ABILIFY MAINTENA [Suspect]
     Active Substance: ARIPIPRAZOLE
     Indication: SCHIZOPHRENIA
     Route: 030
  4. TOLVON [Concomitant]
     Active Substance: MIANSERIN
  5. AKINETON [Concomitant]
     Active Substance: BIPERIDEN HYDROCHLORIDE
  6. ABILIFY [Suspect]
     Active Substance: ARIPIPRAZOLE

REACTIONS (7)
  - Anxiety [Unknown]
  - Suicidal ideation [Unknown]
  - Depression [Unknown]
  - Delusion [Unknown]
  - Akathisia [Unknown]
  - Drug level decreased [Unknown]
  - Diplopia [Unknown]
